FAERS Safety Report 6557436-2 (Version None)
Quarter: 2010Q1

REPORT INFORMATION
  Report Type: 
  Country: None (occurrence: None)
  Receive Date: 20100127
  Receipt Date: 20100127
  Transmission Date: 20100710
  Serious: Yes (Other)
  Sender: FDA-Public Use
  Company Number: None

PATIENT
  Age: 41 Year
  Sex: Female
  Weight: 121.564 kg

DRUGS (1)
  1. TRILEPTAL [Suspect]
     Indication: AFFECTIVE DISORDER
     Dosage: 600MG TWICE DAILY PO OVER TWO MINUTES
     Route: 048
     Dates: start: 20091020, end: 20100119

REACTIONS (2)
  - BLISTER [None]
  - RASH [None]
